FAERS Safety Report 5227541-1 (Version None)
Quarter: 2007Q1

REPORT INFORMATION
  Report Type: 
  Country: None (occurrence: None)
  Receive Date: 20061201
  Receipt Date: 20061031
  Transmission Date: 20070707
  Serious: No
  Sender: FDA-Public Use
  Company Number: US200610002372

PATIENT
  Age: 39 Year
  Sex: Female
  Weight: 99.5 kg

DRUGS (11)
  1. CYMBALTA [Suspect]
     Indication: NEURALGIA
     Dosage: SEE IMAGE
     Route: 048
     Dates: start: 20050101, end: 20050101
  2. CYMBALTA [Suspect]
     Indication: NEURALGIA
     Dosage: SEE IMAGE
     Route: 048
     Dates: start: 20050101, end: 20050101
  3. CYMBALTA [Suspect]
     Indication: NEURALGIA
     Dosage: SEE IMAGE
     Route: 048
     Dates: start: 20050101, end: 20050101
  4. MIDRIN (DICHLORALPHENAZONE, ISOMETHEPTENE, PARACETAMOL) [Concomitant]
  5. TRILEPTAL [Concomitant]
  6. ELAVIL [Concomitant]
  7. METOPROLOL TARTRATE [Concomitant]
  8. ALLEGRA [Concomitant]
  9. OMEPRAZOLE [Concomitant]
  10. TYLENOL W/ CODEINE NO. 3 [Concomitant]
  11. HYDROXYZINE [Concomitant]

REACTIONS (1)
  - BLOOD PRESSURE INCREASED [None]
